FAERS Safety Report 4782281-8 (Version None)
Quarter: 2005Q3

REPORT INFORMATION
  Report Type: 
  Country: None (occurrence: None)
  Receive Date: 20050929
  Receipt Date: 20050706
  Transmission Date: 20060218
  Serious: Yes (Hospitalization)
  Sender: FDA-Public Use
  Company Number: US-BOEHRINGER INGELHEIM PHARMACEUTICALS, INC.-2005-BP-11392BP

PATIENT
  Age: 81 Year
  Sex: Female

DRUGS (15)
  1. CATAPRES-TTS-1 [Suspect]
     Indication: HYPERTENSION
     Route: 061
     Dates: start: 20031124, end: 20040724
  2. CATAPRES-TTS-1 [Suspect]
     Route: 061
     Dates: start: 20031201
  3. CATAPRES-TTS-1 [Suspect]
     Route: 061
     Dates: end: 20040101
  4. CATAPRES-TTS-1 [Suspect]
     Route: 061
     Dates: start: 20040101, end: 20040601
  5. DIOVAN [Concomitant]
  6. NEXIUM [Concomitant]
  7. LANOXIN [Concomitant]
  8. FOLIX [Concomitant]
  9. CITRACAL [Concomitant]
  10. KONSYL [Concomitant]
  11. MIRALAX [Concomitant]
  12. REMERON [Concomitant]
  13. AMBIEN [Concomitant]
  14. ATIVAN [Concomitant]
  15. FOSAMAX [Concomitant]

REACTIONS (6)
  - APPLICATION SITE DERMATITIS [None]
  - APPLICATION SITE PRURITUS [None]
  - COLITIS ISCHAEMIC [None]
  - HAEMATOMA [None]
  - HEART RATE DECREASED [None]
  - HYPERTENSION [None]
